FAERS Safety Report 13346647 (Version 1)
Quarter: 2017Q1

REPORT INFORMATION
  Report Type: Spontaneous
  Country: PE (occurrence: PE)
  Receive Date: 20170317
  Receipt Date: 20170317
  Transmission Date: 20170428
  Serious: Yes (Other)
  Sender: FDA-Public Use
  Company Number: PE-PFIZER INC-2017110550

PATIENT
  Age: 90 Year
  Sex: Female

DRUGS (1)
  1. ZOLOFT [Suspect]
     Active Substance: SERTRALINE HYDROCHLORIDE
     Indication: STRESS
     Dosage: 100 MG, 1X/DAY
     Dates: start: 2006

REACTIONS (3)
  - Depressed mood [Unknown]
  - Embolism [Unknown]
  - Anxiety [Unknown]
